FAERS Safety Report 5910849-1 (Version None)
Quarter: 2008Q4

REPORT INFORMATION
  Report Type: 
  Country: None (occurrence: None)
  Receive Date: 20081006
  Receipt Date: 20081006
  Transmission Date: 20090506
  Serious: Yes (Hospitalization)
  Sender: FDA-Public Use
  Company Number: None

PATIENT
  Sex: Male
  Weight: 100.6 kg

DRUGS (2)
  1. RAPAMUNE [Suspect]
     Indication: COLON CANCER METASTATIC
     Dosage: 16MG ONCE A WEEK PO
     Route: 048
     Dates: start: 20080730, end: 20080806
  2. KETOCONAZOLE [Suspect]
     Indication: COLON CANCER METASTATIC
     Dosage: 200MG ONCE A DAY PO
     Route: 048
     Dates: start: 20080805, end: 20080812

REACTIONS (1)
  - PLEURAL EFFUSION [None]
